FAERS Safety Report 7196175-4 (Version None)
Quarter: 2010Q4

REPORT INFORMATION
  Report Type: 
  Country: None (occurrence: None)
  Receive Date: 20101223
  Receipt Date: 20101018
  Transmission Date: 20110411
  Serious: No
  Sender: FDA-Public Use
  Company Number: US-AMGEN-USASP2010001346

PATIENT

DRUGS (1)
  1. ENBREL [Suspect]
     Indication: RHEUMATOID ARTHRITIS
     Dates: start: 20030401

REACTIONS (8)
  - EXOSTOSIS [None]
  - FEELING JITTERY [None]
  - IMPAIRED HEALING [None]
  - INITIAL INSOMNIA [None]
  - POLLAKIURIA [None]
  - RHEUMATOID ARTHRITIS [None]
  - THIRST [None]
  - VITAMIN D DECREASED [None]
